FAERS Safety Report 7874510 (Version 4)
Quarter: 2014Q3

REPORT INFORMATION
  Report Type: Spontaneous
  Country: JP (occurrence: JP)
  Receive Date: 20110328
  Receipt Date: 20140905
  Transmission Date: 20150326
  Serious: Yes (Death, Other)
  Sender: FDA-Public Use
  Company Number: PHHY2010JP32029

PATIENT
  Age: 76 Year
  Sex: Male

DRUGS (2)
  1. OXYCODONE [Concomitant]
     Active Substance: OXYCODONE
  2. ZOMETA [Suspect]
     Active Substance: ZOLEDRONIC ACID
     Indication: METASTASES TO BONE
     Route: 042
     Dates: start: 20070726

REACTIONS (8)
  - Metastases to liver [Fatal]
  - Hypocalcaemia [Recovered/Resolved]
  - Malignant neoplasm progression [Fatal]
  - Inflammation [Recovering/Resolving]
  - Bone pain [Recovering/Resolving]
  - Malignant neoplasm of renal pelvis [Fatal]
  - Metastases to bone [Fatal]
  - Metastases to lung [Fatal]

NARRATIVE: CASE EVENT DATE: 20070728
